FAERS Safety Report 10524204 (Version 1)
Quarter: 2014Q4

REPORT INFORMATION
  Report Type: Spontaneous
  Country: US (occurrence: None)
  Receive Date: 20141015
  Receipt Date: 20141015
  Transmission Date: 20150528
  Serious: Yes (Hospitalization)
  Sender: FDA-Public Use
  Company Number: None

PATIENT
  Age: 1 Year
  Sex: Male
  Weight: 15.5 kg

DRUGS (3)
  1. VINCRISTINE SULFATE. [Suspect]
     Active Substance: VINCRISTINE SULFATE
  2. DEXAMETHASONE. [Suspect]
     Active Substance: DEXAMETHASONE
  3. DAUNORUBICIN [Suspect]
     Active Substance: DAUNORUBICIN

REACTIONS (8)
  - Ascites [None]
  - Inappropriate antidiuretic hormone secretion [None]
  - Abdominal distension [None]
  - Neutropenia [None]
  - Streptococcal infection [None]
  - Pseudomonas infection [None]
  - Ileus [None]
  - Pleural effusion [None]

NARRATIVE: CASE EVENT DATE: 20141002
